FAERS Safety Report 7073511-0 (Version None)
Quarter: 2010Q4

REPORT INFORMATION
  Report Type: 
  Country: None (occurrence: None)
  Receive Date: 20101029
  Receipt Date: 20100806
  Transmission Date: 20110411
  Serious: No
  Sender: FDA-Public Use
  Company Number: A0867925A

PATIENT
  Age: 94 Year
  Sex: Female

DRUGS (3)
  1. ADVAIR DISKUS 100/50 [Suspect]
     Indication: PRODUCT USED FOR UNKNOWN INDICATION
     Dosage: 1PUFF UNKNOWN
     Route: 055
     Dates: start: 20090101
  2. FLUTICASONE PROPIONATE [Concomitant]
     Route: 045
  3. ASTELIN [Concomitant]
     Route: 045

REACTIONS (2)
  - BURNING SENSATION [None]
  - PRODUCT QUALITY ISSUE [None]
